FAERS Safety Report 9262388 (Version 2)
Quarter: 2013Q2

REPORT INFORMATION
  Report Type: Spontaneous
  Country: US (occurrence: None)
  Receive Date: 20130426
  Receipt Date: 20130522
  Transmission Date: 20140414
  Serious: Yes (Death)
  Sender: FDA-Public Use
  Company Number: 2013SGN00224

PATIENT
  Age: 59 Year
  Sex: Male

DRUGS (5)
  1. ADCETRIS (BRENTUXIMAB VEDOTIN) INJECTION [Suspect]
     Indication: ANAPLASTIC LARGE-CELL LYMPHOMA
     Dosage: 171MG, Q21D
     Dates: start: 20120806, end: 20121011
  2. CYCLOPHOSPHAMIDE (CYCLOPHOSPHAMIDE) [Concomitant]
  3. DOXORUBICIN (DOXORUBICIN HYDROCHLORIDE) [Concomitant]
  4. VINCRISTINE (VINCRISTINE SULFATE) [Concomitant]
  5. PREDNISONE (PREDNISONE ACETATE) [Concomitant]

REACTIONS (1)
  - Death [None]
